FAERS Safety Report 5978925-5 (Version None)
Quarter: 2008Q4

REPORT INFORMATION
  Report Type: 
  Country: None (occurrence: None)
  Receive Date: 20081128
  Receipt Date: 20081116
  Transmission Date: 20090506
  Serious: Yes (Hospitalization)
  Sender: FDA-Public Use
  Company Number: 100#08#2008-05779

PATIENT
  Age: 109 Year
  Sex: Female

DRUGS (2)
  1. CARBAMAZEPINE [Suspect]
     Indication: TRIGEMINAL NEURALGIA
     Dosage: 400 MG
  2. GABAPENTIN [Suspect]
     Indication: TRIGEMINAL NEURALGIA
     Dosage: 400 MG

REACTIONS (18)
  - ANOREXIA [None]
  - ATAXIA [None]
  - BEDRIDDEN [None]
  - BRADYCARDIA [None]
  - CONDITION AGGRAVATED [None]
  - CRANIAL NERVE DISORDER [None]
  - DELIRIUM [None]
  - DEPRESSED MOOD [None]
  - DIZZINESS [None]
  - DRUG EFFECT DECREASED [None]
  - DYSPHORIA [None]
  - FALL [None]
  - FATIGUE [None]
  - HYPONATRAEMIA [None]
  - HYPOPHAGIA [None]
  - INADEQUATE ANALGESIA [None]
  - PAIN [None]
  - WEIGHT DECREASED [None]
